FAERS Safety Report 20866008 (Version 1)
Quarter: 2022Q2

REPORT INFORMATION
  Report Type: Report from Study
  Country: IT (occurrence: IT)
  Receive Date: 20220524
  Receipt Date: 20220524
  Transmission Date: 20220721
  Serious: Yes (Hospitalization)
  Sender: FDA-Public Use
  Company Number: None

PATIENT
  Age: 48 Year
  Sex: Female

DRUGS (2)
  1. LORAZEPAM [Suspect]
     Active Substance: LORAZEPAM
     Dosage: UNIT DOSE: 150 MG
     Route: 048
     Dates: start: 20220321, end: 20220321
  2. FLURAZEPAM MONOHYDROCHLORIDE [Suspect]
     Active Substance: FLURAZEPAM MONOHYDROCHLORIDE
     Indication: Insomnia
     Dosage: UNIT DOSE: 2100 MG, STRENGTH: 30 MG
     Route: 048
     Dates: start: 20220321, end: 20220321

REACTIONS (3)
  - Vomiting [Recovering/Resolving]
  - Sluggishness [Recovering/Resolving]
  - Drug abuse [Recovering/Resolving]

NARRATIVE: CASE EVENT DATE: 20220322
